FAERS Safety Report 26110771 (Version 1)
Quarter: 2025Q4

REPORT INFORMATION
  Report Type: Spontaneous
  Country: EU (occurrence: EU)
  Receive Date: 20251202
  Receipt Date: 20251202
  Transmission Date: 20260117
  Serious: Yes (Hospitalization, Other)
  Sender: AUROBINDO
  Company Number: EU-AFSSAPS-GR2025001781

PATIENT
  Age: 85 Year
  Sex: Female
  Weight: 56.6 kg

DRUGS (2)
  1. FUROSEMIDE [Suspect]
     Active Substance: FUROSEMIDE
     Indication: Renal failure
     Dosage: 500 MILLIGRAM, ONCE A DAY
     Dates: start: 20250424
  2. ALTHIAZIDE [Suspect]
     Active Substance: ALTHIAZIDE
     Indication: Hypertension
     Dosage: 7.5 MILLIGRAM, ONCE A DAY
     Dates: start: 20250909, end: 20251024

REACTIONS (1)
  - Hypokalaemia [Recovered/Resolved]

NARRATIVE: CASE EVENT DATE: 20251023
